FAERS Safety Report 11772533 (Version 2)
Quarter: 2016Q1

REPORT INFORMATION
  Report Type: Spontaneous
  Country: US (occurrence: US)
  Receive Date: 20151124
  Receipt Date: 20160120
  Transmission Date: 20160525
  Serious: Yes (Hospitalization)
  Sender: FDA-Public Use
  Company Number: US-PFIZER INC-2015396768

PATIENT
  Age: 39 Year
  Sex: Male
  Weight: 39.5 kg

DRUGS (4)
  1. ARTHROTEC [Suspect]
     Active Substance: DICLOFENAC SODIUM\MISOPROSTOL
     Indication: HYPERTENSION
     Dosage: UNK, 1X/DAY
  2. VIAGRA [Suspect]
     Active Substance: SILDENAFIL CITRATE
     Indication: HYPERTENSION
     Dosage: 100 MG, AS NEEDED
  3. VIAGRA [Suspect]
     Active Substance: SILDENAFIL CITRATE
     Dosage: UNK
     Dates: start: 200407
  4. ARTHROTEC [Suspect]
     Active Substance: DICLOFENAC SODIUM\MISOPROSTOL
     Indication: BACK PAIN
     Dosage: UNK, AS NEEDED
     Dates: start: 201206

REACTIONS (4)
  - Lung disorder [Recovered/Resolved]
  - Cough [Recovered/Resolved]
  - Product use issue [Not Recovered/Not Resolved]
  - Pneumothorax [Recovered/Resolved]

NARRATIVE: CASE EVENT DATE: 200407
